FAERS Safety Report 24894927 (Version 2)
Quarter: 2025Q1

REPORT INFORMATION
  Report Type: Spontaneous
  Country: NL (occurrence: NL)
  Receive Date: 20250128
  Receipt Date: 20250327
  Transmission Date: 20250409
  Serious: Yes (Other)
  Sender: PFIZER
  Company Number: NL-PFIZER INC-202500017060

PATIENT
  Sex: Male

DRUGS (2)
  1. GENOTROPIN [Suspect]
     Active Substance: SOMATROPIN
     Indication: Growth disorder
  2. GENOTROPIN [Suspect]
     Active Substance: SOMATROPIN
     Indication: Brain neoplasm

REACTIONS (4)
  - Brain cancer metastatic [Unknown]
  - Spinal cord injury [Unknown]
  - Fatigue [Unknown]
  - Muscular weakness [Unknown]
